FAERS Safety Report 23833908 (Version 1)
Quarter: 2024Q2

REPORT INFORMATION
  Report Type: Spontaneous
  Country: NL (occurrence: NL)
  Receive Date: 20240509
  Receipt Date: 20240509
  Transmission Date: 20240716
  Serious: Yes (Hospitalization)
  Sender: FDA-Public Use
  Company Number: None

PATIENT
  Age: 74 Year
  Sex: Female
  Weight: 95 kg

DRUGS (4)
  1. COLCHICINE [Concomitant]
     Active Substance: COLCHICINE
     Dosage: TABLET, 0,5 MG (MILLIGRAM)
  2. SAXENDA [Suspect]
     Active Substance: LIRAGLUTIDE
     Indication: Obesity
  3. SAXENDA [Suspect]
     Active Substance: LIRAGLUTIDE
     Indication: Diabetes mellitus
     Dosage: 18 MG, QD
     Dates: start: 20231013
  4. CARBASPIRIN CALCIUM [Concomitant]
     Active Substance: CARBASPIRIN CALCIUM
     Dosage: 1000 MG, TID (500 MG 3DD2)

REACTIONS (1)
  - Pericarditis [Recovering/Resolving]
